FAERS Safety Report 11647870 (Version 9)
Quarter: 2016Q2

REPORT INFORMATION
  Report Type: Spontaneous
  Country: US (occurrence: US)
  Receive Date: 20151021
  Receipt Date: 20160617
  Transmission Date: 20160815
  Serious: Yes (Other)
  Sender: FDA-Public Use
  Company Number: US-TEVA-602489USA

PATIENT
  Age: 42 Year
  Sex: Female
  Weight: 59.47 kg

DRUGS (7)
  1. TRAMADOL. [Concomitant]
     Active Substance: TRAMADOL
  2. IRON [Concomitant]
     Active Substance: IRON
  3. AMLODIPINE [Concomitant]
     Active Substance: AMLODIPINE BESYLATE
  4. KEPPRA [Concomitant]
     Active Substance: LEVETIRACETAM
  5. AMBIEN [Concomitant]
     Active Substance: ZOLPIDEM TARTRATE
  6. CELEXA [Concomitant]
     Active Substance: CITALOPRAM HYDROBROMIDE
  7. ZECUITY [Suspect]
     Active Substance: SUMATRIPTAN SUCCINATE
     Indication: MIGRAINE
     Dosage: APPLY ONE PATCH AS NEEDED
     Route: 062
     Dates: start: 201510, end: 201510

REACTIONS (12)
  - Scar [Recovered/Resolved]
  - Electric shock [Recovered/Resolved]
  - Pain [Recovered/Resolved]
  - Thermal burn [Recovered/Resolved]
  - Paraesthesia [Recovered/Resolved]
  - Application site pain [Recovered/Resolved]
  - Incorrect drug administration duration [Unknown]
  - Application site erythema [Recovered/Resolved]
  - Drug ineffective [Recovered/Resolved]
  - Product quality issue [Recovered/Resolved]
  - Application site discolouration [Recovered/Resolved]
  - Product physical issue [Recovered/Resolved]

NARRATIVE: CASE EVENT DATE: 201510
